FAERS Safety Report 6212353-2 (Version None)
Quarter: 2009Q2

REPORT INFORMATION
  Report Type: 
  Country: None (occurrence: None)
  Receive Date: 20090529
  Receipt Date: 20090513
  Transmission Date: 20091009
  Serious: Yes (Hospitalization)
  Sender: FDA-Public Use
  Company Number: DSA_33656_2009

PATIENT
  Age: 53 Year
  Sex: Male

DRUGS (5)
  1. ENALAPRIL MALEATE [Suspect]
     Indication: HYPERTENSION
     Dosage: (2.5 MG QD ORAL)
     Route: 048
     Dates: end: 20090204
  2. COLCHICINE (COLCHICINE) [Suspect]
     Indication: GOUT
     Dosage: (2 MG QD ORAL)
     Route: 048
     Dates: start: 20090121, end: 20090125
  3. CELLCEPT [Suspect]
     Indication: RENAL TRANSPLANT
     Dosage: (3 G QD ORAL)
     Route: 048
     Dates: start: 19980918
  4. SANDIMMUNE [Suspect]
     Indication: RENAL TRANSPLANT
     Dosage: (500 MG QD ORAL)
     Route: 048
     Dates: start: 19980918
  5. CARDURA [Concomitant]

REACTIONS (5)
  - BLOOD CHLORIDE DECREASED [None]
  - DEHYDRATION [None]
  - DIARRHOEA [None]
  - DRUG INTERACTION [None]
  - RENAL FAILURE ACUTE [None]
